FAERS Safety Report 18226330 (Version 1)
Quarter: 2020Q3

REPORT INFORMATION
  Report Type: Spontaneous
  Country: US (occurrence: US)
  Receive Date: 20200902
  Receipt Date: 20200902
  Transmission Date: 20201103
  Serious: Yes (Life-Threatening, Hospitalization, Other)
  Sender: FDA-Public Use
  Company Number: None

PATIENT
  Age: 20 Year
  Sex: Female
  Weight: 67.5 kg

DRUGS (1)
  1. ISOTRETINOIN. [Suspect]
     Active Substance: ISOTRETINOIN
     Indication: ACNE
     Route: 048
     Dates: start: 20200416, end: 20200729

REACTIONS (5)
  - Memory impairment [None]
  - Syncope [None]
  - Extradural haematoma [None]
  - Skull fracture [None]
  - Cognitive disorder [None]

NARRATIVE: CASE EVENT DATE: 20200729
